FAERS Safety Report 16032088 (Version 1)
Quarter: 2019Q1

REPORT INFORMATION
  Report Type: Other
  Country: None (occurrence: US)
  Receive Date: 20190304
  Receipt Date: 20190304
  Transmission Date: 20190418
  Serious: Yes (Death, Hospitalization)
  Sender: FDA-Public Use
  Company Number: US-MEDAC PHARMA, INC.-2063529

PATIENT
  Age: 3 Year
  Weight: 14.4 kg

DRUGS (6)
  1. CYTARABINE. [Suspect]
     Active Substance: CYTARABINE
  2. DEXAMETHASONE. [Suspect]
     Active Substance: DEXAMETHASONE
  3. VINCRISTINE SULFATE. [Suspect]
     Active Substance: VINCRISTINE SULFATE
  4. ONCASPAR [Suspect]
     Active Substance: PEGASPARGASE
  5. METHOTREXATE. [Suspect]
     Active Substance: METHOTREXATE
  6. DAUNORUBICIN HYDROCHLORIDE. [Suspect]
     Active Substance: DAUNORUBICIN HYDROCHLORIDE

REACTIONS (5)
  - Cardio-respiratory arrest [Fatal]
  - Septic shock [Fatal]
  - Abdominal compartment syndrome [Fatal]
  - Clostridial sepsis [Unknown]
  - Colitis [Unknown]

NARRATIVE: CASE EVENT DATE: 20181220
